FAERS Safety Report 6767532-2 (Version None)
Quarter: 2010Q2

REPORT INFORMATION
  Report Type: 
  Country: None (occurrence: None)
  Receive Date: 20100614
  Receipt Date: 20100603
  Transmission Date: 20101027
  Serious: Yes (Other)
  Sender: FDA-Public Use
  Company Number: PHHY2010SK34247

PATIENT
  Sex: Female

DRUGS (2)
  1. ACLASTA [Suspect]
     Indication: OSTEOPOROSIS
     Dosage: UNK
     Route: 042
     Dates: start: 20100510
  2. DRUG THERAPY NOS [Concomitant]

REACTIONS (5)
  - ANURIA [None]
  - BODY TEMPERATURE DECREASED [None]
  - GASTROINTESTINAL DISORDER [None]
  - MICTURITION DISORDER [None]
  - MUSCLE SPASMS [None]
